FAERS Safety Report 12337017 (Version 1)
Quarter: 2016Q2

REPORT INFORMATION
  Report Type: Report from Study
  Country: US (occurrence: US)
  Receive Date: 20160505
  Receipt Date: 20160505
  Transmission Date: 20160815
  Serious: Yes (Hospitalization, Other)
  Sender: FDA-Public Use
  Company Number: US-BAYER-2015-455611

PATIENT
  Sex: Male
  Weight: 126.8 kg

DRUGS (12)
  1. VITAMIN D2 [Concomitant]
     Active Substance: ERGOCALCIFEROL
  2. OXYCODONE [Concomitant]
     Active Substance: OXYCODONE
  3. PANTOPRAZOLE [Concomitant]
     Active Substance: PANTOPRAZOLE SODIUM
  4. NEXAVAR [Suspect]
     Active Substance: SORAFENIB
     Indication: HEPATOCELLULAR CARCINOMA
     Dosage: 200 MG, BID
     Route: 048
     Dates: start: 20150421
  5. SPIRONOLACTONE. [Concomitant]
     Active Substance: SPIRONOLACTONE
  6. XIFAXAN [Concomitant]
     Active Substance: RIFAXIMIN
  7. NEXAVAR [Suspect]
     Active Substance: SORAFENIB
     Indication: HEPATOCELLULAR CARCINOMA
     Dosage: 400 MG, BID
     Route: 048
  8. LANTUS [Concomitant]
     Active Substance: INSULIN GLARGINE
  9. METHOCARBAMOL. [Concomitant]
     Active Substance: METHOCARBAMOL
  10. FUROSEMIDE. [Concomitant]
     Active Substance: FUROSEMIDE
  11. HUMALOG [Concomitant]
     Active Substance: INSULIN LISPRO
  12. ADDERALL [Concomitant]
     Active Substance: AMPHETAMINE ASPARTATE\AMPHETAMINE SULFATE\DEXTROAMPHETAMINE SACCHARATE\DEXTROAMPHETAMINE SULFATE

REACTIONS (6)
  - Diarrhoea [None]
  - Ammonia abnormal [None]
  - Drug dose omission [None]
  - Muscle rupture [Recovering/Resolving]
  - Myalgia [Recovering/Resolving]
  - Back pain [None]
